FAERS Safety Report 5894009-9 (Version None)
Quarter: 2008Q3

REPORT INFORMATION
  Report Type: 
  Country: None (occurrence: None)
  Receive Date: 20080923
  Receipt Date: 20080907
  Transmission Date: 20090109
  Serious: No
  Sender: FDA-Public Use
  Company Number: US-B.I. PHARMACEUTICALS,INC./RIDGEFIELD-2008-BP-14297BP

PATIENT
  Sex: Female

DRUGS (3)
  1. ZANTAC 75 [Suspect]
     Indication: ABDOMINAL DISTENSION
     Dosage: 75MG
     Route: 048
     Dates: start: 20080907
  2. ZANTAC 75 [Suspect]
     Indication: HYPERCHLORHYDRIA
  3. ZANTAC 75 [Suspect]
     Indication: DYSGEUSIA

REACTIONS (1)
  - DRUG EFFECT DECREASED [None]
